FAERS Safety Report 24211404 (Version 1)
Quarter: 2024Q3

REPORT INFORMATION
  Report Type: Spontaneous
  Country: CN (occurrence: CN)
  Receive Date: 20240814
  Receipt Date: 20240814
  Transmission Date: 20241016
  Serious: Yes (Hospitalization, Other)
  Sender: PFIZER
  Company Number: CN-PFIZER INC-PV202400104944

PATIENT
  Age: 53 Year
  Sex: Male
  Weight: 59 kg

DRUGS (4)
  1. CYTARABINE [Suspect]
     Active Substance: CYTARABINE
     Indication: Acute myeloid leukaemia
     Dosage: 50 MG, ONCE EVERY 3 DAYS
     Route: 037
     Dates: start: 20240703, end: 20240706
  2. METHOTREXATE SODIUM [Suspect]
     Active Substance: METHOTREXATE SODIUM
     Indication: Acute myeloid leukaemia
     Dosage: 15 MG, ONCE EVERY 3 DAYS
     Route: 037
     Dates: start: 20240703, end: 20240706
  3. DEXAMETHASONE [Concomitant]
     Active Substance: DEXAMETHASONE
     Indication: Acute myeloid leukaemia
     Dosage: 5 MG
     Route: 037
     Dates: start: 20240703, end: 20240706
  4. SODIUM CHLORIDE [Concomitant]
     Active Substance: SODIUM CHLORIDE
     Indication: Vehicle solution use
     Dosage: 10 ML
     Route: 037
     Dates: start: 20240703, end: 20240706

REACTIONS (5)
  - Laryngopharyngitis [Recovering/Resolving]
  - Mouth ulceration [Recovering/Resolving]
  - Dyskinesia [Recovering/Resolving]
  - Abnormal faeces [Recovering/Resolving]
  - Frequent bowel movements [Recovering/Resolving]

NARRATIVE: CASE EVENT DATE: 20240708
